FAERS Safety Report 25966351 (Version 1)
Quarter: 2025Q4

REPORT INFORMATION
  Report Type: Spontaneous
  Country: EU (occurrence: EU)
  Receive Date: 20251028
  Receipt Date: 20251028
  Transmission Date: 20260118
  Serious: Yes (Other)
  Sender: SANOFI AVENTIS
  Company Number: EU-DialogSolutions-SAAVPROD-PI821649-C1

PATIENT
  Age: 20 Year
  Sex: Female
  Weight: 80 kg

DRUGS (14)
  1. CABLIVI [Suspect]
     Active Substance: CAPLACIZUMAB-YHDP
     Indication: Immune thrombocytopenia
     Dosage: 10 MG, QD (FIRST DOSE: 1ST DAY:2 AMP) GIVEN IMMEDIATELY AFTER EACH PLASMA EXCHANGE
     Route: 042
     Dates: start: 20230609, end: 20230609
  2. CABLIVI [Suspect]
     Active Substance: CAPLACIZUMAB-YHDP
     Indication: Immune thrombocytopenia
     Dosage: 10 MG, QD (FIRST DOSE: 1ST DAY:2 AMP) GIVEN IMMEDIATELY AFTER EACH PLASMA EXCHANGE
     Route: 042
     Dates: start: 20230609, end: 20230609
  3. CABLIVI [Suspect]
     Active Substance: CAPLACIZUMAB-YHDP
     Indication: Immune thrombocytopenia
     Dosage: 10 MG, QD (FIRST DOSE: 1ST DAY:2 AMP) GIVEN IMMEDIATELY AFTER EACH PLASMA EXCHANGE
     Route: 042
     Dates: start: 20230609, end: 20230609
  4. CABLIVI [Suspect]
     Active Substance: CAPLACIZUMAB-YHDP
     Indication: Immune thrombocytopenia
     Dosage: 10 MG, QD (FIRST DOSE: 1ST DAY:2 AMP) GIVEN IMMEDIATELY AFTER EACH PLASMA EXCHANGE
     Route: 042
     Dates: start: 20230609, end: 20230609
  5. CABLIVI [Suspect]
     Active Substance: CAPLACIZUMAB-YHDP
     Dosage: 10 MG, QD CONTINUED AFTER DISCONTINUATION OF PLASMA EXCHANGE
     Route: 058
     Dates: start: 20230610, end: 20230627
  6. CABLIVI [Suspect]
     Active Substance: CAPLACIZUMAB-YHDP
     Dosage: 10 MG, QD CONTINUED AFTER DISCONTINUATION OF PLASMA EXCHANGE
     Route: 058
     Dates: start: 20230610, end: 20230627
  7. CABLIVI [Suspect]
     Active Substance: CAPLACIZUMAB-YHDP
     Dosage: 10 MG, QD CONTINUED AFTER DISCONTINUATION OF PLASMA EXCHANGE
     Route: 058
     Dates: start: 20230610, end: 20230627
  8. CABLIVI [Suspect]
     Active Substance: CAPLACIZUMAB-YHDP
     Dosage: 10 MG, QD CONTINUED AFTER DISCONTINUATION OF PLASMA EXCHANGE
     Route: 058
     Dates: start: 20230610, end: 20230627
  9. FRESH FROZEN PLASMA [Concomitant]
     Active Substance: HUMAN PLASMA
     Indication: Immune thrombocytopenia
     Dosage: 2-3 UNITS
     Dates: end: 20230811
  10. HUMAN PLASMA [Concomitant]
     Active Substance: HUMAN PLASMA
     Indication: Immune thrombocytopenia
     Dosage: 1?1.5
  11. ALBUMIN HUMAN [Concomitant]
     Active Substance: ALBUMIN HUMAN
     Indication: Immune thrombocytopenia
     Dosage: 5 %
  12. METHYLPREDNISOLONE [Concomitant]
     Active Substance: METHYLPREDNISOLONE
     Indication: Immune thrombocytopenia
     Dosage: 1-2 MG/KG, QD
     Route: 042
  13. FOLATE SODIUM [Concomitant]
     Active Substance: FOLATE SODIUM
  14. POTASSIUM [Concomitant]
     Active Substance: POTASSIUM

REACTIONS (1)
  - Condition aggravated [Recovered/Resolved]

NARRATIVE: CASE EVENT DATE: 20230703
